FAERS Safety Report 6617479-7 (Version None)
Quarter: 2010Q1

REPORT INFORMATION
  Report Type: 
  Country: None (occurrence: None)
  Receive Date: 20100308
  Receipt Date: 20100225
  Transmission Date: 20100710
  Serious: Yes (Hospitalization)
  Sender: FDA-Public Use
  Company Number: JP-JNJFOC-20100204553

PATIENT
  Sex: Female

DRUGS (16)
  1. CRAVIT [Suspect]
     Indication: PHARYNGITIS
     Route: 048
  2. LOXONIN [Suspect]
     Indication: CERVICOBRACHIAL SYNDROME
     Route: 048
  3. LASIX [Concomitant]
     Route: 048
  4. ARTIST [Concomitant]
     Route: 048
  5. NU LOTAN [Concomitant]
     Route: 048
  6. TAKEPRON [Concomitant]
     Route: 048
  7. ALLOZYM [Concomitant]
     Route: 048
  8. FERROMIA [Concomitant]
     Route: 048
  9. DOGMATYL [Concomitant]
     Indication: DEPRESSION
     Route: 048
  10. DOGMATYL [Concomitant]
     Route: 048
  11. DEPAS [Concomitant]
     Route: 048
  12. BUSCOPAN [Concomitant]
     Route: 048
  13. MYSLEE [Concomitant]
     Route: 048
  14. WARFARIN SODIUM [Concomitant]
     Route: 048
  15. ACTONEL [Concomitant]
     Route: 048
  16. FRANDOL [Concomitant]
     Route: 062

REACTIONS (6)
  - COLD SWEAT [None]
  - CONVULSION [None]
  - DEPRESSED LEVEL OF CONSCIOUSNESS [None]
  - NAUSEA [None]
  - RENAL ATROPHY [None]
  - TREMOR [None]
